FAERS Safety Report 9537079 (Version 1)
Quarter: 2013Q3

REPORT INFORMATION
  Report Type: Spontaneous
  Country: US (occurrence: US)
  Receive Date: 20130919
  Receipt Date: 20130919
  Transmission Date: 20140515
  Serious: No
  Sender: FDA-Public Use
  Company Number: US-PFIZER INC-2013265604

PATIENT
  Sex: Female

DRUGS (1)
  1. SUTENT [Suspect]
     Dosage: 50 MG, UNK

REACTIONS (10)
  - Skin disorder [Recovered/Resolved]
  - Face oedema [Recovered/Resolved]
  - Swelling [Recovered/Resolved]
  - Skin exfoliation [Recovered/Resolved]
  - Neutropenia [Recovered/Resolved]
  - Thyroid function test abnormal [Unknown]
  - Pyrexia [Unknown]
  - Bone pain [Unknown]
  - Myalgia [Unknown]
  - Arthralgia [Unknown]
